FAERS Safety Report 4638284-7 (Version None)
Quarter: 2005Q2

REPORT INFORMATION
  Report Type: 
  Country: None (occurrence: None)
  Receive Date: 20050415
  Receipt Date: 20050401
  Transmission Date: 20051028
  Serious: Yes (Hospitalization)
  Sender: FDA-Public Use
  Company Number: FRVA20050001

PATIENT
  Age: 49 Year
  Sex: Female

DRUGS (4)
  1. FROVATRIPTAN 2.5 MG   VERNALIS [Suspect]
     Indication: MIGRAINE
     Dosage: 2.5 MG 2 DOSES PO
     Route: 048
     Dates: start: 20050324, end: 20050324
  2. FROVATRIPTAN 2.5 MG   VERNALIS [Suspect]
     Indication: MIGRAINE
     Dosage: 2.5 MG 1 DOSE PO
     Route: 048
     Dates: start: 20050322, end: 20050322
  3. FROVATRIPTAN 2.5 MG   VERNALIS [Suspect]
     Indication: MIGRAINE
     Dosage: 2.5 MG 2 DOSES PO
     Route: 048
     Dates: start: 20050321, end: 20050321
  4. FROVATRIPTAN 2.5 MG   VERNALIS [Suspect]
     Indication: MIGRAINE
     Dosage: 2.5 MG 1 DOSE PO
     Route: 048
     Dates: start: 20050320, end: 20050320

REACTIONS (2)
  - DRUG INEFFECTIVE [None]
  - STATUS MIGRAINOSUS [None]
